FAERS Safety Report 8831617 (Version 1)
Quarter: 2012Q4

REPORT INFORMATION
  Report Type: 
  Country: US (occurrence: US)
  Receive Date: 20121009
  Receipt Date: 20121009
  Transmission Date: 20130627
  Serious: Yes (Other)
  Sender: FDA-Public Use
  Company Number: US-ELI_LILLY_AND_COMPANY-US201210000329

PATIENT
  Age: 44 Year
  Sex: Female

DRUGS (2)
  1. HUMALOG 25% LISPRO, 75% NPL [Suspect]
     Indication: TYPE 1 DIABETES MELLITUS
     Dosage: UNK, prn
     Dates: start: 2004
  2. HUMALOG LISPRO [Suspect]
     Indication: TYPE 1 DIABETES MELLITUS
     Dosage: UNK, prn
     Dates: start: 2004

REACTIONS (4)
  - Hyperglycaemic unconsciousness [Unknown]
  - Hypoglycaemic unconsciousness [Unknown]
  - Medication error [Unknown]
  - Blood glucose fluctuation [Unknown]
